FAERS Safety Report 13860421 (Version 1)
Quarter: 2017Q3

REPORT INFORMATION
  Report Type: Report from Study
  Country: DE (occurrence: DE)
  Receive Date: 20170811
  Receipt Date: 20170811
  Transmission Date: 20171127
  Serious: Yes (Death)
  Sender: FDA-Public Use
  Company Number: DE-ROCHE-1974999

PATIENT
  Sex: Male

DRUGS (12)
  1. PEGFILGRASTIM [Suspect]
     Active Substance: PEGFILGRASTIM
     Indication: B-CELL LYMPHOMA
     Route: 058
     Dates: start: 20170716, end: 20170730
  2. CYCLOPHOSPHAMIDE. [Suspect]
     Active Substance: CYCLOPHOSPHAMIDE
     Indication: B-CELL LYMPHOMA
     Route: 042
     Dates: start: 20170713, end: 20170727
  3. PREDNISOLONE. [Suspect]
     Active Substance: PREDNISOLONE
     Indication: B-CELL LYMPHOMA
     Route: 048
     Dates: start: 20170713, end: 20170731
  4. PANTOPRAZOL [Concomitant]
     Active Substance: PANTOPRAZOLE SODIUM
     Indication: VOMITING
     Route: 048
     Dates: start: 20170713, end: 201708
  5. TRIMETHOPRIM + SULFA [Concomitant]
     Indication: INFECTION
     Route: 048
     Dates: start: 20170729, end: 201708
  6. RITUXIMAB. [Suspect]
     Active Substance: RITUXIMAB
     Indication: B-CELL LYMPHOMA
     Route: 042
     Dates: start: 20170712, end: 20170726
  7. ACICLOVIR [Concomitant]
     Active Substance: ACYCLOVIR
     Indication: INFECTION
     Dosage: DOSE: 4 X 400MG
     Route: 048
     Dates: start: 20170713, end: 201708
  8. DOXORUBICINE [Suspect]
     Active Substance: DOXORUBICIN
     Indication: B-CELL LYMPHOMA
     Route: 042
     Dates: start: 20170713, end: 20170727
  9. ALLOPURINOL. [Concomitant]
     Active Substance: ALLOPURINOL
     Indication: BLOOD URIC ACID
     Route: 048
     Dates: start: 20170713, end: 201708
  10. CIPROFLOXACIN. [Concomitant]
     Active Substance: CIPROFLOXACIN
     Indication: INFECTION
     Dosage: DOSE: 2 X 500MG
     Route: 048
     Dates: end: 201708
  11. VINCRISTINE [Suspect]
     Active Substance: VINCRISTINE
     Indication: B-CELL LYMPHOMA
     Route: 042
     Dates: start: 20170714, end: 20170727
  12. AMPHOTERICIN B. [Concomitant]
     Active Substance: AMPHOTERICIN B
     Indication: INFECTION
     Dosage: 4 X 1 TABLESPOON
     Route: 048
     Dates: end: 201708

REACTIONS (1)
  - Sudden death [Fatal]
